FAERS Safety Report 7783286-5 (Version None)
Quarter: 2011Q3

REPORT INFORMATION
  Report Type: 
  Country: None (occurrence: None)
  Receive Date: 20110928
  Receipt Date: 20110920
  Transmission Date: 20111222
  Serious: Yes (Disabling, Other)
  Sender: FDA-Public Use
  Company Number: FR-JNJFOC-20110908110

PATIENT
  Age: 67 Year
  Sex: Female

DRUGS (3)
  1. LEVOFLOXACIN [Suspect]
     Indication: HELICOBACTER INFECTION
     Route: 048
     Dates: start: 20110201, end: 20110201
  2. AMOXICILLIN TRIHYDRATE [Concomitant]
     Indication: HELICOBACTER INFECTION
     Route: 065
     Dates: start: 20110201
  3. PANTOPRAZOLE SODIUM [Concomitant]
     Indication: HELICOBACTER INFECTION
     Route: 065
     Dates: start: 20110201

REACTIONS (2)
  - TENDONITIS [None]
  - DISABILITY [None]
